FAERS Safety Report 21682301 (Version 1)
Quarter: 2022Q4

REPORT INFORMATION
  Report Type: Other
  Country: US (occurrence: None)
  Receive Date: 20221205
  Receipt Date: 20221205
  Transmission Date: 20230112
  Serious: Yes (Other)
  Sender: FDA-Public Use
  Company Number: US-ROCHE-3229939

PATIENT
  Age: 77 Year
  Sex: Male

DRUGS (3)
  1. ERIVEDGE [Suspect]
     Active Substance: VISMODEGIB
     Indication: Neoplasm malignant
     Route: 048
  2. ERIVEDGE [Suspect]
     Active Substance: VISMODEGIB
     Indication: Myasthenia gravis
  3. ERIVEDGE [Suspect]
     Active Substance: VISMODEGIB
     Indication: Tonsil cancer

REACTIONS (2)
  - Atrial fibrillation [Unknown]
  - COVID-19 [Unknown]
